FAERS Safety Report 6106451-1 (Version None)
Quarter: 2009Q1

REPORT INFORMATION
  Report Type: 
  Country: None (occurrence: None)
  Receive Date: 20090306
  Receipt Date: 20090224
  Transmission Date: 20090719
  Serious: Yes (Disabling)
  Sender: FDA-Public Use
  Company Number: US-SANOFI-SYNTHELABO-A03200803581

PATIENT
  Sex: Male

DRUGS (1)
  1. ELIGARD [Suspect]
     Indication: PROSTATE CANCER
     Dosage: 45 MG Q 6 MONTHS
     Route: 058
     Dates: start: 20060101

REACTIONS (4)
  - BONE PAIN [None]
  - FATIGUE [None]
  - MYALGIA [None]
  - PAIN [None]
